FAERS Safety Report 16798850 (Version 1)
Quarter: 2019Q4

REPORT INFORMATION
  Report Type: Spontaneous
  Country: US (occurrence: US)
  Receive Date: 20190911
  Receipt Date: 20190911
  Transmission Date: 20200122
  Serious: No
  Sender: FDA-Public Use
  Company Number: None

PATIENT
  Age: 25 Year
  Sex: Female
  Weight: 68.2 kg

DRUGS (1)
  1. OCREVUS [Suspect]
     Active Substance: OCRELIZUMAB
     Indication: MULTIPLE SCLEROSIS
     Dosage: 600 MG INTRAVENOUS DRIP EVERY 6 MONTHS?
     Route: 041
     Dates: start: 20180313

REACTIONS (1)
  - Ear pruritus [None]

NARRATIVE: CASE EVENT DATE: 20190910
